FAERS Safety Report 8055860-2 (Version None)
Quarter: 2012Q1

REPORT INFORMATION
  Report Type: 
  Country: None (occurrence: None)
  Receive Date: 20120119
  Receipt Date: 20120119
  Transmission Date: 20120608
  Serious: No
  Sender: FDA-Public Use
  Company Number: None

PATIENT
  Age: 65 Year
  Sex: Male
  Weight: 158.75 kg

DRUGS (1)
  1. KEFLEX [Suspect]
     Indication: CELLULITIS
     Dosage: 500MG
     Dates: start: 20120107, end: 20120116

REACTIONS (2)
  - RASH PRURITIC [None]
  - RASH GENERALISED [None]
